FAERS Safety Report 8978483 (Version 3)
Quarter: 2013Q1

REPORT INFORMATION
  Report Type: Spontaneous
  Country: US (occurrence: US)
  Receive Date: 20121221
  Receipt Date: 20130211
  Transmission Date: 20140127
  Serious: Yes (Hospitalization)
  Sender: FDA-Public Use
  Company Number: US-BIOGENIDEC-2012BI060367

PATIENT
  Age: 67 Year
  Sex: Female
  Weight: 67 kg

DRUGS (20)
  1. AVONEX [Suspect]
     Indication: MULTIPLE SCLEROSIS
     Route: 030
     Dates: start: 20031106
  2. AVONEX [Suspect]
     Indication: MULTIPLE SCLEROSIS
     Route: 030
     Dates: start: 200602
  3. METOCLOPRAMIDE [Concomitant]
     Indication: NAUSEA
     Route: 048
  4. GLYCOPYRROLATE (ROBINUL) [Concomitant]
     Route: 048
  5. ZOFRAN ODT [Concomitant]
     Route: 048
  6. ZOLPIDEM (AMBIEN) [Concomitant]
     Route: 048
  7. DIPHENHYDRAMINE (BENADRYL) [Concomitant]
     Route: 048
  8. SIMVASTATIN [Concomitant]
     Route: 048
  9. CITALOPRAM [Concomitant]
     Indication: DEPRESSION
     Route: 048
  10. FLUTICASONE (FLONASE) [Concomitant]
     Route: 045
  11. CARAFATE [Concomitant]
     Route: 048
  12. DICYCLOMINE [Concomitant]
     Route: 048
  13. FISH OIL OMEGA 3 FATTY ACIDS [Concomitant]
     Route: 048
  14. VITAMIN D [Concomitant]
     Route: 048
  15. STOOL SOFTENER [Concomitant]
     Route: 048
  16. BABY ASPIRIN [Concomitant]
     Route: 048
  17. GARLIC [Concomitant]
     Route: 048
  18. CALCIUM [Concomitant]
     Route: 048
  19. ZOLPIDEM [Concomitant]
  20. MACROBID [Concomitant]

REACTIONS (4)
  - Clostridium difficile colitis [Not Recovered/Not Resolved]
  - Hypokalaemia [Unknown]
  - Cystitis [Unknown]
  - Urticaria [Recovered/Resolved]
